FAERS Safety Report 9096005 (Version 1)
Quarter: 2013Q1

REPORT INFORMATION
  Report Type: Spontaneous
  Country: DE (occurrence: DE)
  Receive Date: 20130207
  Receipt Date: 20130207
  Transmission Date: 20140127
  Serious: Yes (Hospitalization)
  Sender: FDA-Public Use
  Company Number: DE-PFIZER INC-2013043278

PATIENT
  Age: 12 Year
  Sex: Male
  Weight: 38 kg

DRUGS (1)
  1. AZITHROMYCIN [Suspect]
     Indication: PNEUMONIA MYCOPLASMAL
     Dosage: UNK
     Route: 048
     Dates: start: 20120924, end: 20120924

REACTIONS (5)
  - Body temperature increased [Recovering/Resolving]
  - Chills [Recovering/Resolving]
  - Diarrhoea [Recovering/Resolving]
  - Gastrointestinal pain [Recovering/Resolving]
  - Vomiting [Recovering/Resolving]
